FAERS Safety Report 9159487 (Version 1)
Quarter: 2013Q1

REPORT INFORMATION
  Report Type: Spontaneous
  Country: US (occurrence: None)
  Receive Date: 20130312
  Receipt Date: 20130312
  Transmission Date: 20140127
  Serious: Yes (Other)
  Sender: FDA-Public Use
  Company Number: None

PATIENT
  Age: 50 None
  Sex: Female
  Weight: 98.43 kg

DRUGS (1)
  1. BUTALBITAL ACETAMINOPHEN + CAFFEINE [Suspect]
     Indication: MIGRAINE
     Dosage: 1-2, 3XDAILY, PO
     Route: 048
     Dates: start: 20121206, end: 20131206

REACTIONS (3)
  - Somnolence [None]
  - Dizziness [None]
  - Vertigo [None]
